FAERS Safety Report 4845621-7 (Version None)
Quarter: 2005Q4

REPORT INFORMATION
  Report Type: 
  Country: None (occurrence: None)
  Receive Date: 20051205
  Receipt Date: 20051129
  Transmission Date: 20060501
  Serious: Yes (Disabling)
  Sender: FDA-Public Use
  Company Number: US-MERCK-0511USA04504

PATIENT
  Sex: Male

DRUGS (1)
  1. VIOXX [Suspect]
     Route: 048
     Dates: start: 20000901, end: 20000101

REACTIONS (5)
  - ANHEDONIA [None]
  - CEREBROVASCULAR ACCIDENT [None]
  - LIFE EXPECTANCY SHORTENED [None]
  - NERVOUS SYSTEM DISORDER [None]
  - PAIN [None]
